FAERS Safety Report 9651930 (Version 1)
Quarter: 2013Q4

REPORT INFORMATION
  Report Type: Spontaneous
  Country: US (occurrence: US)
  Receive Date: 20131029
  Receipt Date: 20131029
  Transmission Date: 20140711
  Serious: No
  Sender: FDA-Public Use
  Company Number: US-ENDO PHARMACEUTICALS INC.-NYST20130002

PATIENT
  Age: 6 Month
  Sex: Female

DRUGS (1)
  1. NYSTATIN CREAM [Suspect]
     Indication: RASH
     Dosage: 4 APPLICATIONS
     Route: 061
     Dates: start: 20130327, end: 2013

REACTIONS (1)
  - Application site pain [Unknown]
